FAERS Safety Report 8158415-4 (Version None)
Quarter: 2012Q1

REPORT INFORMATION
  Report Type: 
  Country: None (occurrence: None)
  Receive Date: 20120217
  Receipt Date: 20111219
  Transmission Date: 20120608
  Serious: Yes (Hospitalization)
  Sender: FDA-Public Use
  Company Number: 001074774

PATIENT
  Sex: Male

DRUGS (2)
  1. PROACTIV GENERAL [Suspect]
  2. PROACTIV GENERAL [Suspect]
     Indication: ACNE
     Dosage: DAILY

REACTIONS (3)
  - HAEMORRHAGE SUBCUTANEOUS [None]
  - PURULENCE [None]
  - NODULE [None]
